FAERS Safety Report 5364710-4 (Version None)
Quarter: 2007Q2

REPORT INFORMATION
  Report Type: 
  Country: None (occurrence: None)
  Receive Date: 20070530
  Receipt Date: 20070322
  Transmission Date: 20071010
  Serious: No
  Sender: FDA-Public Use
  Company Number: 2006PV007634

PATIENT
  Age: 71 Year
  Sex: Female
  Weight: 146.0582 kg

DRUGS (11)
  1. BYETTA [Suspect]
     Indication: DIABETES MELLITUS NON-INSULIN-DEPENDENT
     Dosage: 5 MCG;BID;SC; 10 MCG;BID;SC
     Route: 058
     Dates: start: 20061001, end: 20060101
  2. BYETTA [Suspect]
     Indication: DIABETES MELLITUS NON-INSULIN-DEPENDENT
     Dosage: 5 MCG;BID;SC; 10 MCG;BID;SC
     Route: 058
     Dates: start: 20051118, end: 20060116
  3. BYETTA [Suspect]
     Indication: DIABETES MELLITUS NON-INSULIN-DEPENDENT
     Dosage: 5 MCG;BID;SC; 10 MCG;BID;SC
     Route: 058
     Dates: start: 20060101
  4. BYETTA [Suspect]
     Indication: DIABETES MELLITUS NON-INSULIN-DEPENDENT
     Dosage: 5 MCG;BID;SC; 10 MCG;BID;SC
     Route: 058
     Dates: start: 20070301
  5. GLUCOTROL XL [Concomitant]
  6. COLCHICINE [Concomitant]
  7. PREDNISONE [Concomitant]
  8. SULINDAC [Concomitant]
  9. CYMBALTA [Concomitant]
  10. CORTICOSTEROID NOS [Concomitant]
  11. LANTUS [Concomitant]

REACTIONS (7)
  - CARPAL TUNNEL SYNDROME [None]
  - DECREASED APPETITE [None]
  - HYPOAESTHESIA [None]
  - INJECTION SITE RASH [None]
  - PARAESTHESIA [None]
  - THERAPEUTIC RESPONSE UNEXPECTED [None]
  - WEIGHT DECREASED [None]
